FAERS Safety Report 9376483 (Version 1)
Quarter: 2013Q2

REPORT INFORMATION
  Report Type: Spontaneous
  Country: US (occurrence: None)
  Receive Date: 20130628
  Receipt Date: 20130628
  Transmission Date: 20140414
  Serious: Yes (Life-Threatening)
  Sender: FDA-Public Use
  Company Number: None

PATIENT
  Age: 69 Year
  Sex: Female
  Weight: 83.1 kg

DRUGS (12)
  1. CLINDAMYCIN [Suspect]
     Indication: ANTIBIOTIC PROPHYLAXIS
     Dosage: PRE OP
     Route: 042
     Dates: start: 20130621
  2. CHLORAPREP [Suspect]
     Dosage: PRE OP.
     Route: 061
     Dates: start: 20130620, end: 20130621
  3. VERSED [Concomitant]
  4. BENADRYL [Concomitant]
  5. PEPCID [Concomitant]
  6. DECADRON [Concomitant]
  7. ALBUTEROL [Concomitant]
  8. POTASSIUM CHLORIDE [Concomitant]
  9. SYNTHROID [Concomitant]
  10. SIMVASTATIN [Concomitant]
  11. AMLDOIPINE/BENAZEPRIL [Concomitant]
  12. MULTIVITAMIN [Concomitant]

REACTIONS (6)
  - Pruritus [None]
  - Dysphonia [None]
  - Wheezing [None]
  - Anaphylactic reaction [None]
  - Pulseless electrical activity [None]
  - Cardiac arrest [None]
